FAERS Safety Report 9967901 (Version 1)
Quarter: 2014Q1

REPORT INFORMATION
  Report Type: Spontaneous
  Country: US (occurrence: US)
  Receive Date: 20140306
  Receipt Date: 20140306
  Transmission Date: 20141002
  Serious: No
  Sender: FDA-Public Use
  Company Number: US-ABBVIE-13P-163-1143757-00

PATIENT
  Age: 16 Year
  Sex: Male
  Weight: 55.3 kg

DRUGS (2)
  1. HUMIRA [Suspect]
     Indication: CROHN^S DISEASE
     Route: 058
     Dates: start: 201307, end: 201307
  2. HUMIRA [Suspect]
     Route: 058
     Dates: start: 201308, end: 201308

REACTIONS (5)
  - Rash pruritic [Recovering/Resolving]
  - Rash [Recovering/Resolving]
  - Rash generalised [Recovering/Resolving]
  - Local swelling [Recovering/Resolving]
  - Local swelling [Recovering/Resolving]
